FAERS Safety Report 6970126-7 (Version None)
Quarter: 2010Q3

REPORT INFORMATION
  Report Type: 
  Country: None (occurrence: None)
  Receive Date: 20100903
  Receipt Date: 20100823
  Transmission Date: 20110219
  Serious: Yes (Hospitalization)
  Sender: FDA-Public Use
  Company Number: UTC-001367

PATIENT
  Age: 64 Year
  Sex: Female

DRUGS (2)
  1. REMODULIN [Suspect]
     Dosage: 115.2 UG/KG (0.08 UG/KG, 1 IN 1 MIN), INTRAVENOUS
     Route: 042
     Dates: start: 20081113
  2. TRACLEER [Concomitant]

REACTIONS (1)
  - URINARY TRACT INFECTION [None]
